FAERS Safety Report 11886071 (Version 7)
Quarter: 2019Q4

REPORT INFORMATION
  Report Type: Spontaneous
  Country: US (occurrence: US)
  Receive Date: 20160104
  Receipt Date: 20191014
  Transmission Date: 20200122
  Serious: No
  Sender: FDA-Public Use
  Company Number: US-PFIZER INC-2015434769

PATIENT
  Age: 43 Year
  Sex: Male
  Weight: 122.4 kg

DRUGS (8)
  1. DILANTIN [Interacting]
     Active Substance: PHENYTOIN
     Dosage: 400 MG, UNK [400 MG SPREAD OUT OVER THE DAY, EVERY DAY OF THE WEEK EXCEPT FOR FRIDAY]
     Route: 048
     Dates: start: 20190622
  2. DILANTIN [Interacting]
     Active Substance: PHENYTOIN
     Dosage: UNK [100 MG AT 8 AM, 100 AT 330 PM, AND 200 MG AT 11 PM ON TUESDAY, THURSDAY, SATURDAY AND SUNDAY]
     Route: 048
     Dates: start: 20190608, end: 20190621
  3. DILANTIN [Interacting]
     Active Substance: PHENYTOIN
     Dosage: 360 MG, UNK [400 MG SPREAD OUT OVER THE DAY, EVERY DAY OF THE WEEK EXCEPT FOR FRIDAY]
     Route: 048
     Dates: start: 20190622
  4. DILANTIN [Interacting]
     Active Substance: PHENYTOIN
     Indication: EPILEPSY
     Dosage: 30 MG, UNK
     Dates: start: 1998
  5. DILANTIN [Interacting]
     Active Substance: PHENYTOIN
     Dosage: 360 MG, ALTERNATE DAY [ON MONDAY, WEDNESDAY, AND FRIDAY IS WHEN HE TOOK 360 MG/100 MG AT 8 AM, 100]
     Route: 048
     Dates: start: 20190608, end: 20190621
  6. DIAZEPAM. [Interacting]
     Active Substance: DIAZEPAM
     Indication: ANXIETY
     Dosage: 20 MG, 1X/DAY (AT NIGHT)
  7. DIAZEPAM. [Interacting]
     Active Substance: DIAZEPAM
     Dosage: 41 MG, DAILY [9AM 10 MG, NOON 10 MG, 4PM 1MG, 9PM 20 MG, BY MOUTH TO EQUAL 41 MG A DAY]
     Route: 048
     Dates: start: 20140714
  8. DILANTIN [Suspect]
     Active Substance: PHENYTOIN
     Indication: EPILEPSY
     Dosage: 400 MG, DAILY [BROKEN DOWN AS 100 MG AT 8 AM AND 3:30 PM AND 200 MG AT 11PM; QTY 120]
     Route: 048
     Dates: start: 1998, end: 20190604

REACTIONS (4)
  - Drug interaction [Unknown]
  - Toxicity to various agents [Unknown]
  - Anticonvulsant drug level abnormal [Unknown]
  - Headache [Unknown]
